FAERS Safety Report 16570189 (Version 1)
Quarter: 2019Q3

REPORT INFORMATION
  Report Type: Spontaneous
  Country: DE (occurrence: DE)
  Receive Date: 20190715
  Receipt Date: 20190715
  Transmission Date: 20191004
  Serious: Yes (Hospitalization)
  Sender: FDA-Public Use
  Company Number: DE-SA-2019SA183821

PATIENT
  Age: 55 Year
  Sex: Female

DRUGS (2)
  1. INSULIN LISPRO [Suspect]
     Active Substance: INSULIN LISPRO
     Dosage: UNK
     Route: 065
  2. LEVEMIR [Suspect]
     Active Substance: INSULIN DETEMIR
     Dosage: 88 IE, 0-0-0-1
     Route: 065

REACTIONS (3)
  - Hypoglycaemia [Unknown]
  - Urinary tract infection [Unknown]
  - Product administration error [Unknown]
